FAERS Safety Report 10214181 (Version 3)
Quarter: 2014Q3

REPORT INFORMATION
  Report Type: Spontaneous
  Country: US (occurrence: US)
  Receive Date: 20140603
  Receipt Date: 20140901
  Transmission Date: 20150326
  Serious: No
  Sender: FDA-Public Use
  Company Number: US-PFIZER INC-2014148219

PATIENT
  Sex: Female

DRUGS (1)
  1. DILANTIN-125 [Suspect]
     Active Substance: PHENYTOIN
     Dosage: UNK

REACTIONS (8)
  - Dizziness [Unknown]
  - Pruritus [Unknown]
  - Herpes zoster [Unknown]
  - Tinnitus [Unknown]
  - Skin burning sensation [Unknown]
  - Myalgia [Unknown]
  - Burning sensation [Unknown]
  - Arthralgia [Unknown]
